FAERS Safety Report 9258442 (Version 2)
Quarter: 2014Q1

REPORT INFORMATION
  Report Type: Report from Study
  Country: US (occurrence: US)
  Receive Date: 20130426
  Receipt Date: 20140109
  Transmission Date: 20141002
  Serious: Yes (Life-Threatening, Hospitalization)
  Sender: FDA-Public Use
  Company Number: US-ROCHE-772031

PATIENT
  Age: 62 Year
  Sex: Male
  Weight: 63.7 kg

DRUGS (4)
  1. VISMODEGIB [Suspect]
     Indication: SMALL CELL LUNG CANCER EXTENSIVE STAGE
     Dosage: 150 MG, QD, LAST DOSE ADMINISTERED ON 12/NOV/2010
     Route: 048
     Dates: start: 20101012, end: 20101112
  2. VISMODEGIB [Suspect]
     Dosage: 150 MG, QD
     Route: 048
     Dates: start: 20101012, end: 20101112
  3. ETOPOSIDE [Suspect]
     Indication: SMALL CELL LUNG CANCER EXTENSIVE STAGE
     Dosage: 100 MG/M2, QDX3D/21DC, LAST DOSE ADMINISTERED ON 06/NOV/2010
     Route: 042
     Dates: start: 20101012
  4. CISPLATIN [Suspect]
     Indication: SMALL CELL LUNG CANCER EXTENSIVE STAGE
     Dosage: 75 MG/M2, Q21D, LAST DSOE ON 11/APR/2010
     Route: 042
     Dates: start: 20101012

REACTIONS (10)
  - White blood cell count decreased [Recovered/Resolved]
  - Neutrophil count decreased [Recovered/Resolved]
  - Hyponatraemia [Recovered/Resolved]
  - Nausea [Recovered/Resolved]
  - Headache [Recovered/Resolved]
  - Abdominal pain [Recovered/Resolved]
  - Constipation [Recovered/Resolved]
  - Dyspepsia [Recovered/Resolved]
  - Back pain [Recovered/Resolved]
  - Vomiting [Recovered/Resolved]
